FAERS Safety Report 12590543 (Version 3)
Quarter: 2016Q4

REPORT INFORMATION
  Report Type: Spontaneous
  Country: CN (occurrence: CN)
  Receive Date: 20160725
  Receipt Date: 20161018
  Transmission Date: 20170207
  Serious: Yes (Other)
  Sender: FDA-Public Use
  Company Number: CN-JNJFOC-20160711268

PATIENT

DRUGS (2)
  1. IBUPROFEN. [Suspect]
     Active Substance: IBUPROFEN
     Indication: PATENT DUCTUS ARTERIOSUS
     Dosage: 20 MG/ML, DILUTED TO 10 MG/ML
     Route: 048
  2. IBUPROFEN. [Suspect]
     Active Substance: IBUPROFEN
     Indication: PATENT DUCTUS ARTERIOSUS
     Dosage: FOLLOWED BY 5MG/KG 24 AND 48 HR LATER
     Route: 048

REACTIONS (7)
  - Product use issue [Unknown]
  - Bronchopulmonary dysplasia [Unknown]
  - Necrotising enterocolitis neonatal [Unknown]
  - Occult blood positive [Unknown]
  - Oliguria [Unknown]
  - Intraventricular haemorrhage [Unknown]
  - Off label use [Unknown]
